FAERS Safety Report 7392298-5 (Version None)
Quarter: 2011Q2

REPORT INFORMATION
  Report Type: 
  Country: None (occurrence: None)
  Receive Date: 20110404
  Receipt Date: 20110331
  Transmission Date: 20111010
  Serious: Yes (Death, Other)
  Sender: FDA-Public Use
  Company Number: AU-PFIZER INC-2010031875

PATIENT
  Age: 29 Year
  Sex: Female

DRUGS (5)
  1. LEXAPRO [Suspect]
     Dosage: 5 MG, 1X/DAY
     Dates: start: 20071027
  2. LEXAPRO [Suspect]
     Dosage: 10 MG, 1X/DAY
  3. EFFEXOR [Suspect]
     Dosage: UNK
     Dates: start: 20030101
  4. FISH OIL [Concomitant]
     Dosage: UNK
  5. ZOLOFT [Suspect]
     Dosage: UNK
     Dates: start: 19960101, end: 20030101

REACTIONS (9)
  - COMPLETED SUICIDE [None]
  - ANXIETY [None]
  - MOOD ALTERED [None]
  - CONFUSIONAL STATE [None]
  - DEPRESSION [None]
  - NERVOUSNESS [None]
  - RESTLESSNESS [None]
  - FEELING ABNORMAL [None]
  - AGITATION [None]
